FAERS Safety Report 6558785-4 (Version None)
Quarter: 2010Q1

REPORT INFORMATION
  Report Type: 
  Country: None (occurrence: None)
  Receive Date: 20100129
  Receipt Date: 20100120
  Transmission Date: 20100710
  Serious: Yes (Death, Other)
  Sender: FDA-Public Use
  Company Number: GB-WATSON-2010-00875

PATIENT
  Sex: Female
  Weight: 3.3 kg

DRUGS (2)
  1. CITALOPRAM HYDROBROMIDE [Suspect]
     Indication: DEPRESSION
     Dosage: 30 MG, UNKNOWN
     Route: 064
     Dates: start: 20080110
  2. FERROUS SULPHATE                   /00023503/ [Concomitant]
     Indication: ANAEMIA
     Dosage: 200 MG, TID
     Route: 064
     Dates: start: 20080831, end: 20081103

REACTIONS (1)
  - INTRA-UTERINE DEATH [None]
